FAERS Safety Report 14393704 (Version 1)
Quarter: 2018Q1

REPORT INFORMATION
  Report Type: Spontaneous
  Country: US (occurrence: US)
  Receive Date: 20180115
  Receipt Date: 20180115
  Transmission Date: 20180509
  Serious: Yes (Disabling)
  Sender: FDA-Public Use
  Company Number: None

PATIENT
  Age: 43 Year
  Sex: Female
  Weight: 67.5 kg

DRUGS (4)
  1. PROBIOTICS [Concomitant]
     Active Substance: PROBIOTICS NOS
  2. QUERCETIN [Concomitant]
     Active Substance: QUERCETIN
  3. EVENING PRIMOSE OIL [Concomitant]
  4. TOPICAL, INHALED AND ORAL STEROIDS [Suspect]
     Active Substance: UNSPECIFIED INGREDIENT
     Indication: ECZEMA

REACTIONS (6)
  - Neuralgia [None]
  - Toxicity to various agents [None]
  - Insomnia [None]
  - Impaired work ability [None]
  - Pruritus [None]
  - Steroid withdrawal syndrome [None]

NARRATIVE: CASE EVENT DATE: 20150105
